FAERS Safety Report 14388892 (Version 2)
Quarter: 2018Q2

REPORT INFORMATION
  Report Type: Spontaneous
  Country: US (occurrence: US)
  Receive Date: 20180115
  Receipt Date: 20180611
  Transmission Date: 20180711
  Serious: Yes (Other)
  Sender: FDA-Public Use
  Company Number: US-SA-2017SA227595

PATIENT
  Age: 54 Year
  Sex: Female
  Weight: 43 kg

DRUGS (12)
  1. SPIRIVA [Concomitant]
     Active Substance: TIOTROPIUM BROMIDE MONOHYDRATE
     Dosage: UNK
     Dates: start: 20090101, end: 20111231
  2. TAMOXIFEN [Concomitant]
     Active Substance: TAMOXIFEN
     Dosage: UNK
     Dates: start: 201110, end: 201612
  3. ZOFRAN [ONDANSETRON] [Concomitant]
  4. EFFEXOR XR [Concomitant]
     Active Substance: VENLAFAXINE HYDROCHLORIDE
  5. TAXOTERE [Suspect]
     Active Substance: DOCETAXEL
     Indication: BREAST CANCER
     Dosage: 104.25 MG, Q3W
     Route: 042
     Dates: start: 20110825, end: 20110825
  6. COMPAZINE [PROCHLORPERAZINE MALEATE] [Concomitant]
  7. BENADRYL [Concomitant]
     Active Substance: DIPHENHYDRAMINE HYDROCHLORIDE
  8. ALBUTEROL [SALBUTAMOL] [Concomitant]
     Dosage: UNK
     Dates: start: 20090101, end: 20111231
  9. NEULASTA [Concomitant]
     Active Substance: PEGFILGRASTIM
  10. DECADRON [DEXAMETHASONE] [Concomitant]
  11. NEOSAR [Concomitant]
     Active Substance: CYCLOPHOSPHAMIDE
  12. TAXOTERE [Suspect]
     Active Substance: DOCETAXEL
     Dosage: 104.25 MG, Q3W
     Route: 042
     Dates: start: 20111027, end: 20111027

REACTIONS (1)
  - Alopecia [Recovering/Resolving]

NARRATIVE: CASE EVENT DATE: 201204
